FAERS Safety Report 4384286-8 (Version None)
Quarter: 2004Q2

REPORT INFORMATION
  Report Type: 
  Country: None (occurrence: None)
  Receive Date: 20040624
  Receipt Date: 20031226
  Transmission Date: 20050107
  Serious: Yes (Hospitalization)
  Sender: FDA-Public Use
  Company Number: FR-ROCHE-354812

PATIENT
  Age: 69 Year
  Sex: Male

DRUGS (5)
  1. LOXEN LP [Suspect]
     Indication: ESSENTIAL HYPERTENSION
     Route: 048
  2. PYOSTACINE [Suspect]
     Indication: DERMATITIS CONTACT
     Route: 048
     Dates: start: 20030819, end: 20030822
  3. INSULATARD NPH HUMAN [Suspect]
     Indication: DIABETES MELLITUS INSULIN-DEPENDENT
     Route: 048
     Dates: start: 19950701
  4. LASILIX [Suspect]
     Indication: DRUG USE FOR UNKNOWN INDICATION
     Route: 048
  5. BRICANYL [Suspect]
     Indication: DRUG USE FOR UNKNOWN INDICATION
     Route: 048

REACTIONS (4)
  - ECZEMA [None]
  - EXANTHEM [None]
  - PSORIASIS [None]
  - RASH PUSTULAR [None]
